FAERS Safety Report 5863824-X (Version None)
Quarter: 2008Q3

REPORT INFORMATION
  Report Type: 
  Country: None (occurrence: None)
  Receive Date: 20080827
  Receipt Date: 20080821
  Transmission Date: 20090109
  Serious: Yes (Hospitalization, Other)
  Sender: FDA-Public Use
  Company Number: 2008EN000113

PATIENT
  Age: 29 Year
  Sex: Male

DRUGS (28)
  1. ONCASPAR [Suspect]
     Indication: ACUTE LYMPHOCYTIC LEUKAEMIA
     Dosage: IV; 5150 MG; IV
     Route: 042
     Dates: start: 20080421, end: 20080421
  2. ONCASPAR [Suspect]
     Indication: ACUTE LYMPHOCYTIC LEUKAEMIA
     Dosage: IV; 5150 MG; IV
     Route: 042
     Dates: start: 20080716, end: 20080716
  3. LEVAQUIN [Concomitant]
  4. PENICILLIN V POTASSIUM [Concomitant]
  5. ACYCLOVIR [Concomitant]
  6. DAPSONE [Concomitant]
  7. COUMADIN [Concomitant]
  8. CYMBALTA [Concomitant]
  9. PRILOSEC [Concomitant]
  10. NEURONTIN [Concomitant]
  11. ETOPOSIDE [Concomitant]
  12. DEXAMETHASONE [Concomitant]
  13. CYTARABINE [Concomitant]
  14. ULTRAM [Concomitant]
  15. OXYCODONE HCL [Concomitant]
  16. REGLAN [Concomitant]
  17. ATIVAN [Concomitant]
  18. SENNA [Concomitant]
  19. MIRALAX [Concomitant]
  20. AMBIEN [Concomitant]
  21. PHENERGAN AVENTIS PHARMA [Concomitant]
  22. LANTUS [Concomitant]
  23. NOVOLOG [Concomitant]
  24. POSACONAZOLE [Concomitant]
  25. PREDNISONE TAB [Concomitant]
  26. CELEXA [Concomitant]
  27. MS CONTIN [Concomitant]
  28. KLONOPIN [Concomitant]

REACTIONS (15)
  - ABSCESS [None]
  - AXILLARY MASS [None]
  - CENTRAL LINE INFECTION [None]
  - INFLAMMATION [None]
  - JUGULAR VEIN THROMBOSIS [None]
  - MYALGIA [None]
  - NEUTROPENIA [None]
  - OTITIS MEDIA [None]
  - PANCYTOPENIA [None]
  - PLEURAL EFFUSION [None]
  - PNEUMONIA [None]
  - PULMONARY EMBOLISM [None]
  - SINUSITIS [None]
  - STAPHYLOCOCCAL BACTERAEMIA [None]
  - TREATMENT NONCOMPLIANCE [None]
